FAERS Safety Report 5003564-2 (Version None)
Quarter: 2006Q2

REPORT INFORMATION
  Report Type: 
  Country: None (occurrence: None)
  Receive Date: 20060511
  Receipt Date: 20060504
  Transmission Date: 20061013
  Serious: Yes (Hospitalization)
  Sender: FDA-Public Use
  Company Number: DE-2006-004563

PATIENT
  Age: 52 Year
  Sex: Female

DRUGS (2)
  1. MIRENA [Suspect]
     Indication: MENORRHAGIA
     Dosage: 20 UG/DAY, CONT, INTRA-UTERINE
     Route: 015
     Dates: start: 19990803, end: 20050208
  2. THYROXIN (LEVOTHYROXINE SODIUM) [Concomitant]

REACTIONS (2)
  - ENDOMETRIAL CANCER [None]
  - HAEMORRHAGE [None]
